FAERS Safety Report 23575838 (Version 1)
Quarter: 2024Q1

REPORT INFORMATION
  Report Type: Spontaneous
  Country: US (occurrence: None)
  Receive Date: 20240227
  Receipt Date: 20240227
  Transmission Date: 20240410
  Serious: Yes (Other)
  Sender: FDA-Public Use
  Company Number: None

PATIENT
  Sex: 0

DRUGS (2)
  1. CANNABIDIOL\CANNABIGEROL\HERBALS [Suspect]
     Active Substance: CANNABIDIOL\CANNABIGEROL\HERBALS
  2. CANNABINOL\HERBALS [Suspect]
     Active Substance: CANNABINOL\HERBALS

REACTIONS (3)
  - Product label issue [None]
  - Product formulation issue [None]
  - Anxiety [None]

NARRATIVE: CASE EVENT DATE: 20240227
